FAERS Safety Report 13397697 (Version 4)
Quarter: 2017Q2

REPORT INFORMATION
  Report Type: Report from Study
  Country: US (occurrence: US)
  Receive Date: 20170403
  Receipt Date: 20170629
  Transmission Date: 20170830
  Serious: Yes (Death, Hospitalization)
  Sender: FDA-Public Use
  Company Number: US-BAYER-2017-027217

PATIENT
  Age: 53 Year
  Sex: Male

DRUGS (2)
  1. NEXAVAR [Suspect]
     Active Substance: SORAFENIB
     Indication: HEPATOCELLULAR CARCINOMA
     Dosage: 400 MG, BID
     Route: 048
     Dates: start: 20170201
  2. NEXAVAR [Suspect]
     Active Substance: SORAFENIB
     Indication: HEPATOCELLULAR CARCINOMA
     Dosage: 200 MG, QD
     Route: 048
     Dates: start: 2017

REACTIONS (10)
  - Palmar-plantar erythrodysaesthesia syndrome [None]
  - Vomiting [None]
  - Death [Fatal]
  - Haemorrhage [None]
  - Hiccups [None]
  - Hospitalisation [None]
  - Adverse event [None]
  - Fatigue [None]
  - Mood altered [None]
  - Pain in extremity [None]

NARRATIVE: CASE EVENT DATE: 20170208
